FAERS Safety Report 10409022 (Version 1)
Quarter: 2014Q1

REPORT INFORMATION
  Report Type: Spontaneous
  Country: US (occurrence: None)
  Receive Date: 20130909
  Receipt Date: 20130909
  Transmission Date: 20141002
  Serious: Yes (Hospitalization)
  Sender: FDA-Public Use
  Company Number: 376918N

PATIENT
  Age: 65 Year
  Sex: Female

DRUGS (1)
  1. VICTOZA (LIRAGLUTIDE) SOLUTION FOR INJECTION, 6MG/ML [Suspect]
     Indication: DIABETES MELLITUS
     Route: 058
     Dates: start: 20120612, end: 20130413

REACTIONS (1)
  - Pancreatitis [None]
